FAERS Safety Report 21504380 (Version 1)
Quarter: 2022Q4

REPORT INFORMATION
  Report Type: Report from Study
  Country: ZA (occurrence: ZA)
  Receive Date: 20221025
  Receipt Date: 20221025
  Transmission Date: 20230112
  Serious: Yes (Other)
  Sender: FDA-Public Use
  Company Number: ZA-NOVARTISPH-NVSC2022ZA236242

PATIENT
  Sex: Female

DRUGS (3)
  1. COSENTYX [Suspect]
     Active Substance: SECUKINUMAB
     Indication: Ankylosing spondylitis
     Dosage: 150 MG, QMO (LOAD)
     Route: 058
     Dates: start: 20220819
  2. COSENTYX [Suspect]
     Active Substance: SECUKINUMAB
     Dosage: 150 MG, QMO (MAINTENANCE)
     Route: 058
  3. HUMIRA [Concomitant]
     Active Substance: ADALIMUMAB
     Indication: Product used for unknown indication
     Route: 065

REACTIONS (9)
  - Urinary tract infection [Unknown]
  - Urinary retention [Not Recovered/Not Resolved]
  - Burning sensation [Not Recovered/Not Resolved]
  - Inflammatory bowel disease [Unknown]
  - Gastrointestinal pain [Recovering/Resolving]
  - Nausea [Recovering/Resolving]
  - Bowel movement irregularity [Unknown]
  - Abdominal pain [Recovering/Resolving]
  - Diarrhoea [Unknown]
